FAERS Safety Report 4876605-0 (Version None)
Quarter: 2005Q4

REPORT INFORMATION
  Report Type: 
  Country: None (occurrence: None)
  Receive Date: 20051206
  Receipt Date: 20051025
  Transmission Date: 20060501
  Serious: Yes (Death)
  Sender: FDA-Public Use
  Company Number: US_0509122345

PATIENT
  Age: 61 Year
  Sex: Female
  Weight: 82 kg

DRUGS (3)
  1. CYMBALTA [Suspect]
     Indication: PAIN
     Dosage: 30 MG / 2 DAY
  2. HERCEPTIN [Concomitant]
  3. CHEMOTHERAPY [Concomitant]

REACTIONS (1)
  - COMPLETED SUICIDE [None]
